FAERS Safety Report 9312107 (Version 2)
Quarter: 2013Q4

REPORT INFORMATION
  Report Type: Spontaneous
  Country: GB (occurrence: GB)
  Receive Date: 20130528
  Receipt Date: 20131018
  Transmission Date: 20140711
  Serious: Yes (Disabling)
  Sender: FDA-Public Use
  Company Number: JP-ASTRAZENECA-2013SE36405

PATIENT
  Age: 74 Year
  Sex: Male

DRUGS (5)
  1. CANDESARTAN CILEXETIL [Suspect]
     Indication: HYPERTENSION
     Route: 048
     Dates: start: 20130505, end: 20130507
  2. ASPIRIN COATED [Concomitant]
     Route: 065
  3. BENDROFLUAZIDE [Concomitant]
     Route: 065
  4. GLICLAZIDE [Concomitant]
     Route: 065
  5. METFORMIN [Concomitant]
     Route: 065

REACTIONS (7)
  - Arthralgia [Recovered/Resolved]
  - Confusional state [Recovered/Resolved]
  - Back pain [Recovered/Resolved]
  - Nausea [Recovering/Resolving]
  - Myalgia [Recovering/Resolving]
  - Headache [Recovered/Resolved]
  - Vertigo [Recovering/Resolving]
